FAERS Safety Report 4931815-9 (Version None)
Quarter: 2006Q1

REPORT INFORMATION
  Report Type: 
  Country: None (occurrence: None)
  Receive Date: 20060303
  Receipt Date: 20050119
  Transmission Date: 20060701
  Serious: Yes (Hospitalization)
  Sender: FDA-Public Use
  Company Number: 200510243FR

PATIENT
  Age: 94 Year
  Sex: Female
  Weight: 64 kg

DRUGS (2)
  1. KETEK [Suspect]
     Indication: BRONCHITIS ACUTE
     Route: 048
     Dates: start: 20041214, end: 20041214
  2. CORDIPATCH [Concomitant]
     Route: 061

REACTIONS (5)
  - ATRIAL FIBRILLATION [None]
  - INCORRECT DOSE ADMINISTERED [None]
  - MALAISE [None]
  - PALPITATIONS [None]
  - RESPIRATORY TRACT INFECTION [None]
